FAERS Safety Report 6154379-3 (Version None)
Quarter: 2009Q2

REPORT INFORMATION
  Report Type: 
  Country: None (occurrence: None)
  Receive Date: 20090410
  Receipt Date: 20090410
  Transmission Date: 20091009
  Serious: Yes (Other)
  Sender: FDA-Public Use
  Company Number: None

PATIENT
  Age: 62 Year
  Sex: Female
  Weight: 128.4 kg

DRUGS (4)
  1. VENLAFAXINE HCL [Suspect]
     Indication: DEPRESSION
     Dosage: 300 MG EVERY DAY PO
     Route: 048
     Dates: start: 20080801
  2. VENLAFAXINE HCL [Suspect]
     Indication: ILL-DEFINED DISORDER
     Dosage: 300 MG EVERY DAY PO
     Route: 048
     Dates: start: 20080801
  3. VENLAFAXINE HCL [Suspect]
     Indication: DEPRESSION
     Dosage: 75 MG EVERY DAY PO
     Route: 048
     Dates: start: 20080801
  4. VENLAFAXINE HCL [Suspect]
     Indication: ILL-DEFINED DISORDER
     Dosage: 75 MG EVERY DAY PO
     Route: 048
     Dates: start: 20080801

REACTIONS (2)
  - ANXIETY [None]
  - PRODUCT QUALITY ISSUE [None]
